FAERS Safety Report 6634659-5 (Version None)
Quarter: 2010Q1

REPORT INFORMATION
  Report Type: 
  Country: None (occurrence: None)
  Receive Date: 20100315
  Receipt Date: 20100305
  Transmission Date: 20100710
  Serious: Yes (Hospitalization)
  Sender: FDA-Public Use
  Company Number: B0639521A

PATIENT
  Sex: Female

DRUGS (1)
  1. AUGMENTIN [Suspect]
     Indication: INFLUENZA
     Dosage: 1G PER DAY
     Route: 048
     Dates: start: 20080214, end: 20080214

REACTIONS (5)
  - DYSPNOEA [None]
  - ERYTHEMA [None]
  - EYELID OEDEMA [None]
  - LIP OEDEMA [None]
  - PRURITUS [None]
